FAERS Safety Report 19991602 (Version 3)
Quarter: 2021Q4

REPORT INFORMATION
  Report Type: Report from Study
  Country: US (occurrence: US)
  Receive Date: 20211025
  Receipt Date: 20211218
  Transmission Date: 20220304
  Serious: Yes (Hospitalization, Other)
  Sender: FDA-Public Use
  Company Number: US-TAKEDA-2021TUS010345

PATIENT
  Sex: Female
  Weight: 138 kg

DRUGS (27)
  1. HUMAN IMMUNOGLOBULIN G [Suspect]
     Active Substance: HUMAN IMMUNOGLOBULIN G
     Indication: Immunodeficiency common variable
     Dosage: 22 GRAM, 1/WEEK
     Route: 065
  2. HUMAN IMMUNOGLOBULIN G [Suspect]
     Active Substance: HUMAN IMMUNOGLOBULIN G
     Indication: Primary immunodeficiency syndrome
     Dosage: 22 GRAM, 1/WEEK
     Route: 058
     Dates: start: 20210818
  3. HUMAN IMMUNOGLOBULIN G [Suspect]
     Active Substance: HUMAN IMMUNOGLOBULIN G
     Indication: Asthma
  4. FASENRA [Concomitant]
     Active Substance: BENRALIZUMAB
  5. ACETAMINOPHEN [Concomitant]
     Active Substance: ACETAMINOPHEN
  6. DIPHENHYDRAMINE [Concomitant]
     Active Substance: DIPHENHYDRAMINE
  7. EPINEPHRINE [Concomitant]
     Active Substance: EPINEPHRINE
  8. Lmx [Concomitant]
  9. OZEMPIC [Concomitant]
     Active Substance: SEMAGLUTIDE
  10. DILTIAZEM [Concomitant]
     Active Substance: DILTIAZEM
  11. ALBUTEROL [Concomitant]
     Active Substance: ALBUTEROL
  12. IPRATROPIUM [Concomitant]
     Active Substance: IPRATROPIUM
  13. ATROVENT [Concomitant]
     Active Substance: IPRATROPIUM BROMIDE
  14. OMEPRAZOLE [Concomitant]
     Active Substance: OMEPRAZOLE
  15. ESTRADIOL [Concomitant]
     Active Substance: ESTRADIOL
  16. ELIQUIS [Concomitant]
     Active Substance: APIXABAN
  17. MAXALT [Concomitant]
     Active Substance: RIZATRIPTAN BENZOATE
  18. ZINC [Concomitant]
     Active Substance: ZINC
  19. SINGULAIR [Concomitant]
     Active Substance: MONTELUKAST SODIUM
  20. CRESTOR [Concomitant]
     Active Substance: ROSUVASTATIN CALCIUM
  21. LISINOPRIL [Concomitant]
     Active Substance: LISINOPRIL
  22. VITAMINS [Concomitant]
     Active Substance: VITAMINS
  23. VITAMIN C [Concomitant]
     Active Substance: ASCORBIC ACID
  24. PROGESTERONE [Concomitant]
     Active Substance: PROGESTERONE
  25. ZETIA [Concomitant]
     Active Substance: EZETIMIBE
  26. TRULICITY [Concomitant]
     Active Substance: DULAGLUTIDE
  27. CINQAIR [Concomitant]
     Active Substance: RESLIZUMAB

REACTIONS (3)
  - COVID-19 pneumonia [Unknown]
  - Inappropriate schedule of product administration [Unknown]
  - Bronchitis [Unknown]
